FAERS Safety Report 9850904 (Version 1)
Quarter: 2014Q1

REPORT INFORMATION
  Report Type: Spontaneous
  Country: US (occurrence: None)
  Receive Date: 20140124
  Receipt Date: 20140124
  Transmission Date: 20141002
  Serious: Yes (Death)
  Sender: FDA-Public Use
  Company Number: 2014AP000481

PATIENT
  Age: 66 Year
  Sex: Male

DRUGS (9)
  1. CITALOPRAM HYDROBROMIDE TABLETS [Suspect]
     Route: 048
  2. BUPRENORPHINE W/NALOXONE [Suspect]
     Route: 048
  3. METHADONE [Suspect]
     Route: 048
  4. LORAZEPAM [Suspect]
     Route: 048
  5. HYDROCODONE [Suspect]
     Route: 048
  6. NALOXONE [Suspect]
     Route: 048
  7. HEROIN [Suspect]
     Route: 048
  8. MORPHINE [Suspect]
     Route: 048
  9. CODEINE [Suspect]
     Route: 048

REACTIONS (1)
  - Intentional drug misuse [None]
